FAERS Safety Report 11181089 (Version 1)
Quarter: 2015Q2

REPORT INFORMATION
  Report Type: Spontaneous
  Country: US (occurrence: None)
  Receive Date: 20150610
  Receipt Date: 20150610
  Transmission Date: 20150821
  Serious: Yes (Hospitalization)
  Sender: FDA-Public Use
  Company Number: None

PATIENT
  Age: 41 Year
  Sex: Female
  Weight: 168.74 kg

DRUGS (6)
  1. LOVENOX [Suspect]
     Active Substance: ENOXAPARIN SODIUM
     Indication: GASTRECTOMY
     Dosage: 1 SHOT DAILY ONCE DAILY INTO THE MUSCLE
     Route: 030
     Dates: start: 20150605, end: 20150608
  2. VITAMIN C [Suspect]
     Active Substance: ASCORBIC ACID
  3. NORCO [Concomitant]
     Active Substance: ACETAMINOPHEN\HYDROCODONE BITARTRATE
  4. VITAMIN B12 [Suspect]
     Active Substance: CYANOCOBALAMIN
  5. PROSACEA [Concomitant]
     Active Substance: SULFUR
  6. NATURE MADE VITAMELTS BIOTIN [Concomitant]

REACTIONS (1)
  - Rash [None]

NARRATIVE: CASE EVENT DATE: 20150608
